FAERS Safety Report 6439930-8 (Version None)
Quarter: 2009Q4

REPORT INFORMATION
  Report Type: 
  Country: None (occurrence: None)
  Receive Date: 20091113
  Receipt Date: 20091102
  Transmission Date: 20100525
  Serious: Yes (Death, Hospitalization, Other)
  Sender: FDA-Public Use
  Company Number: DE-PFIZER INC-2009212285

PATIENT
  Age: 72 Year
  Sex: Male
  Weight: 76 kg

DRUGS (3)
  1. SUTENT [Suspect]
     Indication: METASTATIC RENAL CELL CARCINOMA
     Dosage: 50 MG, 1X/DAY
     Route: 048
     Dates: start: 20090330, end: 20090419
  2. SUTENT [Suspect]
     Dosage: 37.5 MG, 1X/DAY
     Dates: start: 20090420, end: 20090901
  3. TRIMIPRAMINE MALEATE [Suspect]
     Indication: DEPRESSION
     Dosage: 50 MG, 3X/DAY
     Dates: start: 20090801, end: 20091001

REACTIONS (14)
  - ASTHENIA [None]
  - DECREASED APPETITE [None]
  - DEPRESSION [None]
  - DRY MOUTH [None]
  - DRY SKIN [None]
  - DYSPNOEA [None]
  - HEADACHE [None]
  - HYPERSENSITIVITY [None]
  - LIVIDITY [None]
  - PULMONARY EMBOLISM [None]
  - SLEEP DISORDER [None]
  - STOMATITIS [None]
  - THROMBOCYTOPENIA [None]
  - WEIGHT DECREASED [None]
